FAERS Safety Report 10653070 (Version 3)
Quarter: 2014Q4

REPORT INFORMATION
  Report Type: Spontaneous
  Country: JP (occurrence: JP)
  Receive Date: 20141215
  Receipt Date: 20141231
  Transmission Date: 20150529
  Serious: Yes (Hospitalization)
  Sender: FDA-Public Use
  Company Number: JP-ASTELLAS-2014JP027908

PATIENT
  Age: 82 Year
  Sex: Male

DRUGS (7)
  1. CALFINA [Concomitant]
     Active Substance: ALFACALCIDOL
     Indication: PROPHYLAXIS
     Route: 048
     Dates: start: 20140702
  2. GONAX [Concomitant]
     Active Substance: DEGARELIX
     Indication: HORMONE-REFRACTORY PROSTATE CANCER
     Route: 058
     Dates: start: 20140408, end: 20140408
  3. GONAX [Concomitant]
     Active Substance: DEGARELIX
     Route: 058
     Dates: start: 20140507
  4. XTANDI [Suspect]
     Active Substance: ENZALUTAMIDE
     Indication: HORMONE-REFRACTORY PROSTATE CANCER
     Route: 048
     Dates: start: 20140924, end: 20141118
  5. RANMARK [Concomitant]
     Active Substance: DENOSUMAB
     Indication: METASTASES TO BONE
     Route: 058
     Dates: start: 20140702
  6. CHOREITO [Concomitant]
     Indication: DYSURIA
     Route: 048
     Dates: start: 2014
  7. DORIPENEM [Concomitant]
     Active Substance: DORIPENEM
     Indication: SEPTIC SHOCK
     Dosage: UNK UNK, UNKNOWN FREQ.
     Route: 065
     Dates: start: 20141002

REACTIONS (2)
  - Nausea [Recovered/Resolved]
  - Decreased appetite [Recovered/Resolved]

NARRATIVE: CASE EVENT DATE: 201410
